FAERS Safety Report 6729677-2 (Version None)
Quarter: 2010Q2

REPORT INFORMATION
  Report Type: 
  Country: None (occurrence: None)
  Receive Date: 20100518
  Receipt Date: 20100504
  Transmission Date: 20101027
  Serious: Yes (Hospitalization)
  Sender: FDA-Public Use
  Company Number: US-GENZYME-POMP-1000936

PATIENT
  Sex: Female
  Weight: 5.76 kg

DRUGS (1)
  1. MYOZYME [Suspect]
     Indication: GLYCOGEN STORAGE DISEASE TYPE II
     Dosage: 150 MG, 1X/W
     Route: 042
     Dates: start: 20100318

REACTIONS (2)
  - ATELECTASIS [None]
  - PULMONARY OEDEMA [None]
